FAERS Safety Report 5524454-2 (Version None)
Quarter: 2007Q4

REPORT INFORMATION
  Report Type: 
  Country: None (occurrence: None)
  Receive Date: 20071122
  Receipt Date: 20071114
  Transmission Date: 20080405
  Serious: Yes (Other)
  Sender: FDA-Public Use
  Company Number: PHBS2007JP11469

PATIENT
  Sex: Female

DRUGS (5)
  1. SIMULECT [Suspect]
     Indication: RENAL TRANSPLANT
     Route: 042
  2. TACROLIMUS [Suspect]
     Indication: RENAL TRANSPLANT
     Route: 065
  3. CELLCEPT [Suspect]
     Indication: RENAL TRANSPLANT
     Route: 048
  4. STEROIDS NOS [Suspect]
  5. RITUXIMAB [Suspect]
     Dosage: 150 MG/M2

REACTIONS (2)
  - CYTOMEGALOVIRUS VIRAEMIA [None]
  - NEUTROPENIA [None]
